FAERS Safety Report 19269718 (Version 1)
Quarter: 2021Q2

REPORT INFORMATION
  Report Type: Spontaneous
  Country: US (occurrence: US)
  Receive Date: 20210518
  Receipt Date: 20210518
  Transmission Date: 20210717
  Serious: Yes (Hospitalization, Disabling)
  Sender: FDA-Public Use
  Company Number: None

PATIENT
  Age: 17 Year
  Sex: Female
  Weight: 60.75 kg

DRUGS (5)
  1. TYROSINE [Concomitant]
     Active Substance: TYROSINE
  2. WHOLE GARLIC [Concomitant]
  3. SEA MOSS [Concomitant]
  4. INVEGA SUSTENNA [Suspect]
     Active Substance: PALIPERIDONE PALMITATE
     Indication: SCHIZOPHRENIA
     Dates: start: 20170509
  5. VITAMINS A, B, D [Concomitant]

REACTIONS (6)
  - Cough [None]
  - Head discomfort [None]
  - Amnesia [None]
  - Movement disorder [None]
  - Stress [None]
  - Dizziness [None]

NARRATIVE: CASE EVENT DATE: 20170309
